FAERS Safety Report 6297552-6 (Version None)
Quarter: 2009Q3

REPORT INFORMATION
  Report Type: 
  Country: None (occurrence: None)
  Receive Date: 20090805
  Receipt Date: 20090727
  Transmission Date: 20100115
  Serious: Yes (Other)
  Sender: FDA-Public Use
  Company Number: GB-BRISTOL-MYERS SQUIBB COMPANY-14716963

PATIENT
  Age: 66 Year
  Sex: Female

DRUGS (7)
  1. BENDROFLUMETHIAZIDE [Suspect]
     Indication: HYPERTENSION
  2. FUROSEMIDE [Suspect]
     Indication: JOINT SWELLING
  3. SIMVASTATIN [Concomitant]
  4. ASPIRIN [Concomitant]
  5. AMLODIPINE [Concomitant]
  6. ACETAMINOPHEN AND CODEINE PHOSPHATE [Concomitant]
  7. ATENOLOL [Concomitant]

REACTIONS (1)
  - HYPOKALAEMIA [None]
